FAERS Safety Report 9187619 (Version 1)
Quarter: 2013Q1

REPORT INFORMATION
  Report Type: Spontaneous
  Country: GB (occurrence: GB)
  Receive Date: 20130325
  Receipt Date: 20130325
  Transmission Date: 20140127
  Serious: Yes (Hospitalization, Other)
  Sender: FDA-Public Use
  Company Number: GB-JNJFOC-20130310331

PATIENT
  Sex: 0

DRUGS (4)
  1. REMICADE [Suspect]
     Indication: COLITIS ULCERATIVE
     Dosage: SECOND INFUSION
     Route: 042
  2. REMICADE [Suspect]
     Indication: COLITIS ULCERATIVE
     Dosage: THIRD INFUSION
     Route: 042
  3. REMICADE [Suspect]
     Indication: COLITIS ULCERATIVE
     Route: 042
  4. GLUCOCORTICOSTEROIDS [Concomitant]
     Route: 042

REACTIONS (5)
  - Colectomy [Unknown]
  - Colitis ulcerative [Unknown]
  - Infusion related reaction [Unknown]
  - Type IV hypersensitivity reaction [Unknown]
  - Rash [Unknown]
